FAERS Safety Report 7191862-6 (Version None)
Quarter: 2010Q4

REPORT INFORMATION
  Report Type: 
  Country: None (occurrence: None)
  Receive Date: 20101223
  Receipt Date: 20101210
  Transmission Date: 20110411
  Serious: Yes (Hospitalization, Other)
  Sender: FDA-Public Use
  Company Number: PHHY2010JP84550

PATIENT
  Sex: Male

DRUGS (12)
  1. AMN107 AMN+CAP [Suspect]
     Indication: CHRONIC MYELOID LEUKAEMIA
     Dosage: 800 MG, QD
     Route: 048
     Dates: start: 20091201, end: 20091206
  2. AMN107 AMN+CAP [Suspect]
     Dosage: 200 MG, QD
     Route: 048
     Dates: start: 20091221, end: 20100105
  3. AMN107 AMN+CAP [Suspect]
     Dosage: 200 MG, QD
     Route: 048
     Dates: start: 20100208
  4. AMN107 AMN+CAP [Suspect]
     Dosage: 200 MG, QD
     Route: 048
     Dates: end: 20101201
  5. ITRIZOLE [Suspect]
     Dosage: UNK
     Route: 048
     Dates: start: 20101201, end: 20101201
  6. LASIX [Concomitant]
     Dosage: 80 MG, UNK
     Route: 048
     Dates: start: 20091201
  7. AMLODIN [Concomitant]
     Dosage: 10 MG, UNK
     Route: 048
     Dates: start: 20091201
  8. ZYLORIC ^FRESENIUS^ [Concomitant]
     Dosage: 100 MG, UNK
     Route: 048
     Dates: start: 20091201
  9. ASPIRIN [Concomitant]
     Dosage: 10 MG, UNK
     Route: 048
     Dates: start: 20091201
  10. FRANDOL [Concomitant]
     Dosage: UNK
     Dates: start: 20091201
  11. CALCIUM POLYSTYRENE SULFONATE [Concomitant]
     Dosage: UNK
     Route: 048
     Dates: start: 20091201
  12. LENDORMIN [Concomitant]
     Dosage: 0.25 MG, UNK
     Route: 048
     Dates: start: 20091201

REACTIONS (3)
  - CARDIAC FAILURE [None]
  - MYOCARDIAL INFARCTION [None]
  - PLEURAL EFFUSION [None]
